FAERS Safety Report 13064467 (Version 2)
Quarter: 2017Q1

REPORT INFORMATION
  Report Type: Spontaneous
  Country: JP (occurrence: JP)
  Receive Date: 20161227
  Receipt Date: 20170216
  Transmission Date: 20170428
  Serious: Yes (Other)
  Sender: FDA-Public Use
  Company Number: JP-OTSUKA-2016_029631

PATIENT
  Age: 35 Year
  Sex: Female

DRUGS (4)
  1. REBAMIPIDE [Concomitant]
     Active Substance: REBAMIPIDE
     Indication: RHINITIS
     Dosage: 300 MG, QD
     Route: 048
     Dates: start: 20161105, end: 20161111
  2. CRAVIT [Suspect]
     Active Substance: LEVOFLOXACIN
     Indication: RHINITIS
     Dosage: 500 MG, QD
     Route: 048
     Dates: start: 20161105, end: 20161111
  3. SISAAL [Concomitant]
     Active Substance: DEXTROMETHORPHAN HYDROBROMIDE
     Indication: RHINITIS
     Dosage: 45 MG, QD
     Route: 048
     Dates: start: 20161105, end: 20161111
  4. SAMSCA [Suspect]
     Active Substance: TOLVAPTAN
     Indication: CONGENITAL CYSTIC KIDNEY DISEASE
     Dosage: 30 MG, QD
     Route: 048
     Dates: start: 20160822, end: 20161111

REACTIONS (1)
  - Hepatic function abnormal [Recovered/Resolved]

NARRATIVE: CASE EVENT DATE: 20161111
